FAERS Safety Report 23736505 (Version 2)
Quarter: 2024Q2

REPORT INFORMATION
  Report Type: Spontaneous
  Country: ES (occurrence: ES)
  Receive Date: 20240412
  Receipt Date: 20240424
  Transmission Date: 20240716
  Serious: Yes (Hospitalization, Other)
  Sender: FDA-Public Use
  Company Number: ES-PFIZER INC-PV202400044931

PATIENT
  Age: 86 Year
  Sex: Male

DRUGS (1)
  1. METHOTREXATE SODIUM [Suspect]
     Active Substance: METHOTREXATE SODIUM
     Indication: Dermatitis atopic
     Dosage: 10 MG, WEEKLY
     Route: 048

REACTIONS (5)
  - Accidental overdose [Unknown]
  - Toxicity to various agents [Unknown]
  - Skin lesion [Unknown]
  - Condition aggravated [Unknown]
  - Off label use [Unknown]
